FAERS Safety Report 4362526-9 (Version None)
Quarter: 2004Q2

REPORT INFORMATION
  Report Type: 
  Country: None (occurrence: None)
  Receive Date: 20040521
  Receipt Date: 20040512
  Transmission Date: 20050107
  Serious: Yes (Hospitalization)
  Sender: FDA-Public Use
  Company Number: FR-BRISTOL-MYERS SQUIBB COMPANY-12586111

PATIENT
  Age: 33 Year
  Sex: Male

DRUGS (7)
  1. DAFALGAN [Suspect]
     Route: 048
     Dates: start: 20040211
  2. FUNGIZONE [Suspect]
     Route: 048
     Dates: start: 20040221, end: 20040319
  3. CLAVENTIN [Suspect]
     Route: 042
  4. PIPERACILLIN [Suspect]
     Route: 042
     Dates: start: 20040301, end: 20040319
  5. TOPALGIC [Suspect]
     Route: 048
     Dates: start: 20040211
  6. CELECTOL [Suspect]
     Dates: start: 19990615
  7. CIPROFLOXACIN [Suspect]
     Route: 048
     Dates: start: 20040219, end: 20040319

REACTIONS (4)
  - EXANTHEM [None]
  - PRURITUS [None]
  - PYREXIA [None]
  - RASH [None]
